FAERS Safety Report 5750311-2 (Version None)
Quarter: 2008Q2

REPORT INFORMATION
  Report Type: 
  Country: None (occurrence: None)
  Receive Date: 20080521
  Receipt Date: 20080521
  Transmission Date: 20081010
  Serious: No
  Sender: FDA-Public Use
  Company Number: None

PATIENT
  Age: 51 Year
  Sex: Female
  Weight: 70.3075 kg

DRUGS (1)
  1. KENALOG [Suspect]
     Indication: PAIN
     Dates: start: 20070201, end: 20070213

REACTIONS (8)
  - DISCOMFORT [None]
  - FEAR [None]
  - FEELING ABNORMAL [None]
  - ILL-DEFINED DISORDER [None]
  - INJECTION SITE ATROPHY [None]
  - MUSCLE ATROPHY [None]
  - PAIN [None]
  - SKIN DISCOLOURATION [None]
